FAERS Safety Report 4599721-X (Version None)
Quarter: 2005Q1

REPORT INFORMATION
  Report Type: 
  Country: None (occurrence: None)
  Receive Date: 20050307
  Receipt Date: 20050225
  Transmission Date: 20050727
  Serious: Yes (Hospitalization)
  Sender: FDA-Public Use
  Company Number: US-JNJFOC-20050206572

PATIENT
  Age: 44 Year
  Sex: Female

DRUGS (2)
  1. DURAGESIC-100 [Suspect]
     Dosage: ONLY USED ^A FEW TIMES.^
     Route: 062
  2. DURAGESIC-100 [Suspect]
     Route: 062

REACTIONS (3)
  - ABDOMINAL PAIN UPPER [None]
  - BLOOD GLUCOSE FLUCTUATION [None]
  - DRUG WITHDRAWAL SYNDROME [None]
